FAERS Safety Report 25178544 (Version 2)
Quarter: 2025Q3

REPORT INFORMATION
  Report Type: Spontaneous
  Country: US (occurrence: US)
  Receive Date: 20250409
  Receipt Date: 20250724
  Transmission Date: 20251020
  Serious: No
  Sender: ABBVIE
  Company Number: US-ABBVIE-6215644

PATIENT

DRUGS (1)
  1. COMBIGAN [Suspect]
     Active Substance: BRIMONIDINE TARTRATE\TIMOLOL MALEATE
     Indication: Product used for unknown indication
     Dosage: TWICE A DAY 1 DROP PER EYE
     Route: 047
     Dates: start: 20250131

REACTIONS (2)
  - Wrong technique in product usage process [Unknown]
  - Product container issue [Unknown]
